FAERS Safety Report 11577076 (Version 1)
Quarter: 2015Q3

REPORT INFORMATION
  Report Type: Spontaneous
  Country: US (occurrence: US)
  Receive Date: 20150930
  Receipt Date: 20150930
  Transmission Date: 20151125
  Serious: Yes (Hospitalization, Other)
  Sender: FDA-Public Use
  Company Number: US-GLAXOSMITHKLINE-US2015GSK138779

PATIENT
  Sex: Female

DRUGS (4)
  1. COREG [Suspect]
     Active Substance: CARVEDILOL
     Indication: CARDIOVASCULAR DISORDER
     Dosage: UNK
     Dates: start: 20130829
  2. ADVAIR HFA [Suspect]
     Active Substance: FLUTICASONE PROPIONATE\SALMETEROL XINAFOATE
     Indication: LUNG DISORDER
  3. VENTOLIN HFA [Suspect]
     Active Substance: ALBUTEROL SULFATE
     Indication: PRODUCT USED FOR UNKNOWN INDICATION
     Dosage: UNK
     Dates: start: 201309
  4. ADVAIR HFA [Suspect]
     Active Substance: FLUTICASONE PROPIONATE\SALMETEROL XINAFOATE
     Indication: CHRONIC OBSTRUCTIVE PULMONARY DISEASE
     Dosage: UNK
     Dates: start: 201403

REACTIONS (19)
  - Systemic lupus erythematosus [Unknown]
  - Hospitalisation [Unknown]
  - Arterial disorder [Unknown]
  - Arthritis [Unknown]
  - Respiratory tract infection bacterial [Unknown]
  - Neuropathy peripheral [Unknown]
  - Migraine [Unknown]
  - Coronary arterial stent insertion [Unknown]
  - Depression [Unknown]
  - Rheumatoid arthritis [Unknown]
  - Thrombosis [Unknown]
  - Lung disorder [Unknown]
  - Pain [Unknown]
  - Cardiac disorder [Unknown]
  - Dyskinesia [Unknown]
  - Angina pectoris [Unknown]
  - Neuralgia [Unknown]
  - Nervous system disorder [Unknown]
  - Hyperhidrosis [Unknown]

NARRATIVE: CASE EVENT DATE: 2013
